FAERS Safety Report 22280962 (Version 5)
Quarter: 2024Q3

REPORT INFORMATION
  Report Type: Spontaneous
  Country: US (occurrence: US)
  Receive Date: 20230503
  Receipt Date: 20240705
  Transmission Date: 20241016
  Serious: Yes (Other)
  Sender: BRISTOL MYERS SQUIBB
  Company Number: US-BRISTOL-MYERS SQUIBB COMPANY-2023-063326

PATIENT
  Age: 60 Year
  Sex: Male
  Weight: 86.18 kg

DRUGS (15)
  1. SPRYCEL [Suspect]
     Active Substance: DASATINIB
     Indication: Chronic myeloid leukaemia transformation
     Route: 048
     Dates: start: 202304
  2. SPRYCEL [Suspect]
     Active Substance: DASATINIB
     Dosage: 4 TABLETS EVERY EVENING
     Route: 048
     Dates: start: 202309
  3. SPRYCEL [Suspect]
     Active Substance: DASATINIB
     Route: 048
  4. PROPRANOLOL [Concomitant]
     Active Substance: PROPRANOLOL HYDROCHLORIDE
     Indication: Hypertension
  5. MONTELUKAST [Concomitant]
     Active Substance: MONTELUKAST SODIUM
     Indication: Product used for unknown indication
  6. TAMSULOSIN [Concomitant]
     Active Substance: TAMSULOSIN
     Indication: Product used for unknown indication
  7. FLUTICASONE PROPIONATE [Concomitant]
     Active Substance: FLUTICASONE PROPIONATE
     Indication: Product used for unknown indication
  8. AVODART [Concomitant]
     Active Substance: DUTASTERIDE
     Indication: Product used for unknown indication
  9. SINGULAIR [Concomitant]
     Active Substance: MONTELUKAST SODIUM
     Indication: Product used for unknown indication
  10. DICLOFENAC [Concomitant]
     Active Substance: DICLOFENAC
     Indication: Product used for unknown indication
     Dates: start: 202402
  11. VITAMINS [Concomitant]
     Active Substance: VITAMINS
     Indication: Product used for unknown indication
  12. VITAMIN C [Concomitant]
     Active Substance: ASCORBIC ACID
     Indication: Product used for unknown indication
  13. ZINC [Concomitant]
     Active Substance: ZINC
     Indication: Product used for unknown indication
  14. FINASTERIDE [Concomitant]
     Active Substance: FINASTERIDE
     Indication: Product used for unknown indication
  15. ALBUTEROL [Concomitant]
     Active Substance: ALBUTEROL
     Indication: Hypersensitivity
     Dosage: PRN
     Route: 055

REACTIONS (23)
  - Colitis [Unknown]
  - Abdominal discomfort [Not Recovered/Not Resolved]
  - Haematochezia [Unknown]
  - Proteinuria [Recovered/Resolved]
  - Urine abnormality [Unknown]
  - Fatigue [Unknown]
  - Muscle spasms [Unknown]
  - Pain [Unknown]
  - Rash [Recovering/Resolving]
  - Flushing [Recovering/Resolving]
  - Hypoaesthesia oral [Unknown]
  - Hypoaesthesia [Unknown]
  - Dyspnoea [Unknown]
  - Erythema [Unknown]
  - Facial paralysis [Unknown]
  - Feeling abnormal [Not Recovered/Not Resolved]
  - Asthenia [Unknown]
  - Rosacea [Unknown]
  - Mouth swelling [Unknown]
  - Dysphagia [Unknown]
  - Back pain [Unknown]
  - Hypersensitivity [Recovering/Resolving]
  - Paralysis [Unknown]

NARRATIVE: CASE EVENT DATE: 20230401
